FAERS Safety Report 5268922-X (Version None)
Quarter: 2007Q1

REPORT INFORMATION
  Report Type: 
  Country: None (occurrence: None)
  Receive Date: 20070313
  Receipt Date: 20070301
  Transmission Date: 20070707
  Serious: Yes (Hospitalization)
  Sender: FDA-Public Use
  Company Number: GXKR2007AU02213

PATIENT
  Age: 71 Year
  Sex: Male

DRUGS (4)
  1. ALLOPURINOL [Suspect]
     Indication: GOUT
     Dosage: 100 MG, QD, ORAL
     Route: 048
  2. GLICLAZIDE (GLICLAZIDE) [Concomitant]
  3. METFORMIN HCL [Concomitant]
  4. CALCITRIOL [Concomitant]

REACTIONS (1)
  - EOSINOPHILIC PUSTULAR FOLLICULITIS [None]
